FAERS Safety Report 16868752 (Version 7)
Quarter: 2021Q1

REPORT INFORMATION
  Report Type: Spontaneous
  Country: US (occurrence: US)
  Receive Date: 20190930
  Receipt Date: 20210112
  Transmission Date: 20210419
  Serious: No
  Sender: FDA-Public Use
  Company Number: US-PFIZER INC-2019421654

PATIENT
  Age: 57 Year
  Sex: Male
  Weight: 113.37 kg

DRUGS (4)
  1. LYRICA [Suspect]
     Active Substance: PREGABALIN
     Indication: DEPRESSION
     Dosage: 225 MG, 2X/DAY
     Route: 048
  2. ZIPRASIDONE HCL [Suspect]
     Active Substance: ZIPRASIDONE HYDROCHLORIDE
     Indication: DEPRESSION
     Dosage: 40 MG, 2X/DAY (TWICE)
     Dates: start: 201906
  3. LYRICA [Suspect]
     Active Substance: PREGABALIN
     Dosage: 675 MG, DAILY (TOTAL DOSE 300 MG IN THE MORNING/375 MG IN THE EVENING)
     Route: 048
     Dates: start: 20201103
  4. LYRICA [Suspect]
     Active Substance: PREGABALIN
     Indication: EPILEPSY
     Dosage: 300 MG, 2X/DAY
     Route: 048

REACTIONS (6)
  - Malaise [Unknown]
  - Memory impairment [Unknown]
  - Amnesia [Unknown]
  - Restlessness [Unknown]
  - Overdose [Unknown]
  - Off label use [Unknown]
